FAERS Safety Report 21035597 (Version 1)
Quarter: 2022Q3

REPORT INFORMATION
  Report Type: Spontaneous
  Country: US (occurrence: US)
  Receive Date: 20220701
  Receipt Date: 20220701
  Transmission Date: 20221027
  Serious: Yes (Other)
  Sender: FDA-Public Use
  Company Number: US-FreseniusKabi-FK202209215

PATIENT
  Age: 73 Year
  Sex: Male

DRUGS (3)
  1. BUPIVACAINE [Suspect]
     Active Substance: BUPIVACAINE
     Indication: Ventricular tachycardia
     Dosage: 30 ML OF 0.5% BUPIVACAINE WITH EPINEPHRINE (RATIO, 1:200,000) .??A CONTINUOUS INFUSION OF 0.1% BUPIV
  2. BUPIVACAINE [Suspect]
     Active Substance: BUPIVACAINE
     Dosage: 15-ML BOLUS OF 0.25% BUPIVACAINE WITH EPINEPHRINE (RATIO, 1:200,000)?THE INFUSION CONCENTRATION WAS
  3. HEPARIN [Concomitant]
     Active Substance: HEPARIN SODIUM
     Indication: Product used for unknown indication

REACTIONS (2)
  - Horner^s syndrome [Unknown]
  - Drug ineffective [Unknown]
